FAERS Safety Report 25616051 (Version 4)
Quarter: 2025Q4

REPORT INFORMATION
  Report Type: Spontaneous
  Country: US (occurrence: US)
  Receive Date: 20250729
  Receipt Date: 20251209
  Transmission Date: 20260118
  Serious: Yes (Hospitalization, Other)
  Sender: SANOFI AVENTIS
  Company Number: US-SA-2025SA212596

PATIENT
  Age: 16 Year
  Sex: Female

DRUGS (2)
  1. DUPIXENT [Suspect]
     Active Substance: DUPILUMAB
     Indication: Dermatitis atopic
     Dosage: 400 MG, 1X
     Route: 058
     Dates: start: 20250628, end: 20250628
  2. DUPIXENT [Suspect]
     Active Substance: DUPILUMAB
     Indication: Eczema
     Dosage: 200 MG, QOW
     Route: 058
     Dates: start: 20250713, end: 2025

REACTIONS (23)
  - Syncope [Unknown]
  - Loss of consciousness [Unknown]
  - Circulatory collapse [Recovering/Resolving]
  - Hypoaesthesia [Recovering/Resolving]
  - Gait inability [Not Recovered/Not Resolved]
  - Paraesthesia [Recovering/Resolving]
  - Condition aggravated [Unknown]
  - Asthenia [Unknown]
  - Pain in extremity [Unknown]
  - Headache [Recovering/Resolving]
  - Dizziness [Recovering/Resolving]
  - Hyperhidrosis [Recovering/Resolving]
  - Limb discomfort [Recovered/Resolved]
  - Fatigue [Unknown]
  - Tremor [Recovering/Resolving]
  - Inflammation [Unknown]
  - Malaise [Unknown]
  - Heart rate increased [Recovering/Resolving]
  - Blood pressure increased [Unknown]
  - Sensory loss [Recovering/Resolving]
  - Metabolic function test abnormal [Unknown]
  - Red blood cell sedimentation rate decreased [Unknown]
  - Eosinophil count increased [Unknown]

NARRATIVE: CASE EVENT DATE: 20250101
